FAERS Safety Report 5953321-5 (Version None)
Quarter: 2008Q4

REPORT INFORMATION
  Report Type: 
  Country: None (occurrence: None)
  Receive Date: 20081114
  Receipt Date: 20081105
  Transmission Date: 20090506
  Serious: Yes (Life-Threatening, Hospitalization)
  Sender: FDA-Public Use
  Company Number: US-JNJFOC-20081101818

PATIENT
  Age: 25 Year
  Sex: Female
  Weight: 54.43 kg

DRUGS (2)
  1. TYLENOL [Suspect]
     Route: 048
  2. TYLENOL [Suspect]
     Indication: HEADACHE
     Dosage: SIX AT A TIME (STRENGTH NOT SPECIFIED) SEVERAL TIMES A DAY
     Route: 048

REACTIONS (2)
  - HEPATIC FAILURE [None]
  - INTENTIONAL OVERDOSE [None]
